FAERS Safety Report 13660853 (Version 1)
Quarter: 2017Q2

REPORT INFORMATION
  Report Type: Spontaneous
  Country: FR (occurrence: FR)
  Receive Date: 20170616
  Receipt Date: 20170616
  Transmission Date: 20170830
  Serious: Yes (Other)
  Sender: FDA-Public Use
  Company Number: FR-BAYER-2017-111148

PATIENT
  Age: 38 Year
  Sex: Female

DRUGS (1)
  1. MIRENA [Suspect]
     Active Substance: LEVONORGESTREL
     Indication: CHEMICAL CONTRACEPTION
     Dosage: 20 MCG/24HR, CONT
     Route: 015
     Dates: start: 20120919

REACTIONS (15)
  - Renal cyst [Unknown]
  - Fluid retention [Unknown]
  - Amnesia [Unknown]
  - Ovarian cyst [Unknown]
  - Vaginal discharge [Unknown]
  - Speech disorder [Unknown]
  - Night sweats [Unknown]
  - Weight increased [Unknown]
  - Urinary tract infection [Unknown]
  - Aggression [Unknown]
  - Loss of libido [Unknown]
  - Breast pain [Unknown]
  - Hypersensitivity [Unknown]
  - Asthenia [Unknown]
  - Alopecia [Unknown]

NARRATIVE: CASE EVENT DATE: 201212
